FAERS Safety Report 4285920-3 (Version None)
Quarter: 2004Q1

REPORT INFORMATION
  Report Type: 
  Country: None (occurrence: None)
  Receive Date: 20040205
  Receipt Date: 20031222
  Transmission Date: 20041129
  Serious: Yes (Other)
  Sender: FDA-Public Use
  Company Number: NL-GLAXOSMITHKLINE-B0318418A

PATIENT
  Age: 29 Year
  Sex: Female

DRUGS (2)
  1. MALARONE [Suspect]
     Indication: PROPHYLAXIS
     Route: 048
     Dates: start: 20031202, end: 20031224
  2. NO CONCURRENT MEDICATIONS [Concomitant]

REACTIONS (2)
  - ABORTION SPONTANEOUS [None]
  - HAEMORRHAGE [None]
